FAERS Safety Report 18559590 (Version 1)
Quarter: 2020Q4

REPORT INFORMATION
  Report Type: Spontaneous
  Country: US (occurrence: US)
  Receive Date: 20201128
  Receipt Date: 20201128
  Transmission Date: 20210114
  Serious: Yes (Life-Threatening)
  Sender: FDA-Public Use
  Company Number: None

PATIENT
  Age: 59 Year
  Sex: Male
  Weight: 72 kg

DRUGS (4)
  1. VITAMIN C [Concomitant]
     Active Substance: ASCORBIC ACID
  2. LOSARTAN. [Concomitant]
     Active Substance: LOSARTAN
  3. URSODIOL CAPSULES [Suspect]
     Active Substance: URSODIOL
     Indication: CHOLELITHIASIS
     Dosage: ?          QUANTITY:1 CAPSULE(S);?
     Route: 048
     Dates: start: 20200923, end: 20201007
  4. MAGNESIUM [Concomitant]
     Active Substance: MAGNESIUM

REACTIONS (4)
  - Hepatic function abnormal [None]
  - Impaired gastric emptying [None]
  - Weight decreased [None]
  - Abdominal pain [None]

NARRATIVE: CASE EVENT DATE: 20200923
